FAERS Safety Report 5366318-3 (Version None)
Quarter: 2007Q2

REPORT INFORMATION
  Report Type: 
  Country: None (occurrence: None)
  Receive Date: 20070620
  Receipt Date: 20070620
  Transmission Date: 20071010
  Serious: Yes (Hospitalization)
  Sender: FDA-Public Use
  Company Number: None

PATIENT
  Age: 81 Year
  Sex: Male

DRUGS (2)
  1. ASPIRIN [Suspect]
     Indication: STENT PLACEMENT
     Dosage: 325MG EVERY DAY PO
     Route: 048
     Dates: start: 20070131, end: 20070521
  2. CLOPIDOGREL [Suspect]
     Dosage: 75MG EVERY DAY PO
     Route: 048

REACTIONS (3)
  - ANAEMIA [None]
  - GASTRITIS EROSIVE [None]
  - HAEMORRHAGE [None]
